FAERS Safety Report 17608906 (Version 1)
Quarter: 2020Q2

REPORT INFORMATION
  Report Type: Spontaneous
  Country: US (occurrence: US)
  Receive Date: 20200401
  Receipt Date: 20200401
  Transmission Date: 20200713
  Serious: No
  Sender: FDA-Public Use
  Company Number: US-UCBSA-2016043425

PATIENT
  Sex: Female

DRUGS (2)
  1. METHYLPHENIDATE. [Concomitant]
     Active Substance: METHYLPHENIDATE
     Indication: ATTENTION DEFICIT HYPERACTIVITY DISORDER
     Dosage: 20 MG, ONCE DAILY (QD) FOR 2 YEARS
     Dates: end: 201609
  2. METADATE CD [Suspect]
     Active Substance: METHYLPHENIDATE HYDROCHLORIDE
     Indication: ATTENTION DEFICIT HYPERACTIVITY DISORDER
     Dosage: 20 MG, ONCE DAILY (QD) FOR 2 YEARS
     Dates: start: 201609, end: 2016

REACTIONS (1)
  - Performance status decreased [Recovering/Resolving]

NARRATIVE: CASE EVENT DATE: 2016
